FAERS Safety Report 9079379 (Version 3)
Quarter: 2013Q2

REPORT INFORMATION
  Report Type: Report from Study
  Country: JP (occurrence: JP)
  Receive Date: 20130130
  Receipt Date: 20130425
  Transmission Date: 20140414
  Serious: Yes (Other)
  Sender: FDA-Public Use
  Company Number: JP-ROCHE-1184944

PATIENT
  Age: 93 Year
  Sex: Male

DRUGS (2)
  1. RANIBIZUMAB [Suspect]
     Indication: AGE-RELATED MACULAR DEGENERATION
     Route: 050
     Dates: start: 20130116, end: 20130116
  2. GATIFLO [Concomitant]
     Route: 065
     Dates: start: 201201, end: 201201

REACTIONS (1)
  - Depressed level of consciousness [Recovering/Resolving]
